FAERS Safety Report 6048093-2 (Version None)
Quarter: 2009Q1

REPORT INFORMATION
  Report Type: 
  Country: None (occurrence: None)
  Receive Date: 20090123
  Receipt Date: 20090113
  Transmission Date: 20090719
  Serious: Yes (Other)
  Sender: FDA-Public Use
  Company Number: PHHY2009BR01683

PATIENT
  Age: 68 Year
  Sex: Female
  Weight: 100 kg

DRUGS (4)
  1. GALVUS MET COMBIPACK [Suspect]
     Indication: TYPE 2 DIABETES MELLITUS
     Dosage: 850/50 MG (BOTH TABLETS MORNING AND NIGHT)
     Route: 048
  2. LOSARTAN POTASSIUM [Concomitant]
     Indication: HYPERTENSION
     Dosage: 50 MG, (1DF/DAY)
     Route: 048
  3. PROPRANOLOL [Concomitant]
     Indication: HYPERTENSION
     Dosage: 800 MG, (1 DF/DAY)
     Route: 048
  4. METHYLDOPA [Concomitant]
     Indication: HYPERTENSION
     Dosage: 250 MG, (1 DF/DAY)
     Route: 048

REACTIONS (3)
  - EYELID OEDEMA [None]
  - MICTURITION DISORDER [None]
  - NAUSEA [None]
